FAERS Safety Report 8850614 (Version 4)
Quarter: 2014Q1

REPORT INFORMATION
  Report Type: Spontaneous
  Country: US (occurrence: US)
  Receive Date: 20121019
  Receipt Date: 20140321
  Transmission Date: 20141002
  Serious: Yes (Disabling, Other)
  Sender: FDA-Public Use
  Company Number: US-ASTRAZENECA-2012SE78880

PATIENT
  Age: 64 Year
  Sex: Male

DRUGS (4)
  1. NEXIUM [Suspect]
     Route: 048
  2. OMEPRAZOLE [Suspect]
     Route: 048
  3. CRESTOR [Suspect]
     Route: 048
  4. GENERICS [Suspect]
     Route: 065

REACTIONS (11)
  - Neoplasm malignant [Unknown]
  - Headache [Unknown]
  - Hypertension [Unknown]
  - Neuropathy peripheral [Unknown]
  - Sleep apnoea syndrome [Unknown]
  - Impaired work ability [Unknown]
  - Malaise [Unknown]
  - Drug dose omission [Not Recovered/Not Resolved]
  - Intentional drug misuse [Unknown]
  - Drug effect delayed [Unknown]
  - Drug ineffective [Not Recovered/Not Resolved]
